FAERS Safety Report 4382976-4 (Version None)
Quarter: 2004Q2

REPORT INFORMATION
  Report Type: 
  Country: None (occurrence: None)
  Receive Date: 20040617
  Receipt Date: 20040609
  Transmission Date: 20050107
  Serious: Yes (Hospitalization)
  Sender: FDA-Public Use
  Company Number: CIP04000118

PATIENT
  Age: 77 Year
  Sex: Female

DRUGS (2)
  1. BENET (RISEDRONATE SODIUM) TABLET, 2.5MG [Suspect]
     Indication: OSTEOPOROSIS
     Dosage: 2.5 MG, DAILY, ORAL
     Route: 048
     Dates: start: 20020724, end: 20021210
  2. ALFAROL (ALFACALCIDOL) [Concomitant]

REACTIONS (14)
  - ALANINE AMINOTRANSFERASE INCREASED [None]
  - ASPARTATE AMINOTRANSFERASE INCREASED [None]
  - ASTHENIA [None]
  - BLOOD ALKALINE PHOSPHATASE INCREASED [None]
  - DYSGEUSIA [None]
  - HEPATIC CYST [None]
  - HEPATIC FUNCTION ABNORMAL [None]
  - HEPATIC STEATOSIS [None]
  - HEPATITIS C VIRUS [None]
  - HEPATOCELLULAR DAMAGE [None]
  - HYPOAESTHESIA [None]
  - JAUNDICE [None]
  - NEPHROLITHIASIS [None]
  - URINARY TRACT INFECTION [None]
